FAERS Safety Report 4444620-7 (Version None)
Quarter: 2004Q3

REPORT INFORMATION
  Report Type: 
  Country: None (occurrence: None)
  Receive Date: 20040907
  Receipt Date: 20040820
  Transmission Date: 20050211
  Serious: Yes (Other)
  Sender: FDA-Public Use
  Company Number: DE-JNJFOC-20040706203

PATIENT
  Age: 9 Year
  Sex: Female
  Weight: 26 kg

DRUGS (1)
  1. VERMOX [Suspect]
     Indication: NEMATODIASIS
     Dosage: 2 DOSE (S), IN 1 DAY, ORAL
     Route: 048
     Dates: start: 20040714

REACTIONS (1)
  - CONVULSION [None]
